FAERS Safety Report 4280356-3 (Version None)
Quarter: 2004Q1

REPORT INFORMATION
  Report Type: 
  Country: None (occurrence: None)
  Receive Date: 20040127
  Receipt Date: 20040121
  Transmission Date: 20041129
  Serious: Yes (Other)
  Sender: FDA-Public Use
  Company Number: 200410242GDS

PATIENT
  Sex: Female

DRUGS (1)
  1. MOXIFLOXACIN HCL [Suspect]

REACTIONS (3)
  - HEPATITIS ACUTE [None]
  - HYPERSENSITIVITY [None]
  - IDIOSYNCRATIC DRUG REACTION [None]
